FAERS Safety Report 7583316-X (Version None)
Quarter: 2011Q2

REPORT INFORMATION
  Report Type: 
  Country: None (occurrence: None)
  Receive Date: 20110630
  Receipt Date: 20110620
  Transmission Date: 20111010
  Serious: Yes (Other)
  Sender: FDA-Public Use
  Company Number: US-AMGEN-USASP2011031553

PATIENT
  Age: 61 Year
  Sex: Female

DRUGS (4)
  1. ENBREL [Suspect]
     Indication: PSORIATIC ARTHROPATHY
  2. ENBREL [Suspect]
     Indication: ANKYLOSING SPONDYLITIS
     Dosage: 50 MG, 2 TIMES/WK
     Dates: start: 20110501
  3. ENBREL [Suspect]
     Indication: PSORIASIS
  4. METHOTREXATE [Concomitant]
     Dates: start: 20110401

REACTIONS (4)
  - OEDEMA PERIPHERAL [None]
  - PSORIASIS [None]
  - PAIN IN EXTREMITY [None]
  - DYSPNOEA [None]
